FAERS Safety Report 9533976 (Version 3)
Quarter: 2014Q1

REPORT INFORMATION
  Report Type: Spontaneous
  Country: US (occurrence: US)
  Receive Date: 20130918
  Receipt Date: 20140116
  Transmission Date: 20141002
  Serious: Yes (Hospitalization)
  Sender: FDA-Public Use
  Company Number: US-ABBVIE-13P-163-1134487-00

PATIENT
  Age: 69 Year
  Sex: Female
  Weight: 62.65 kg

DRUGS (11)
  1. SYNTHROID [Suspect]
     Indication: THYROIDECTOMY
     Dosage: DAILY
     Dates: start: 20130705, end: 20130729
  2. SYNTHROID [Suspect]
     Dates: start: 1978, end: 1978
  3. COUMADIN [Suspect]
     Indication: ATRIAL FIBRILLATION
     Dates: start: 20130705, end: 20130709
  4. ARMOUR THYROID [Suspect]
     Indication: PRODUCT USED FOR UNKNOWN INDICATION
  5. TIROSINT [Suspect]
     Indication: PRODUCT USED FOR UNKNOWN INDICATION
  6. LEVOTHYROXINE [Suspect]
     Indication: PRODUCT USED FOR UNKNOWN INDICATION
  7. CENTRUM SILVER [Concomitant]
     Indication: PRODUCT USED FOR UNKNOWN INDICATION
  8. VITAMIN D [Concomitant]
     Indication: PRODUCT USED FOR UNKNOWN INDICATION
  9. TYLENOL [Concomitant]
     Indication: PRODUCT USED FOR UNKNOWN INDICATION
  10. TOPROL [Concomitant]
     Indication: PRODUCT USED FOR UNKNOWN INDICATION
     Dates: start: 201112
  11. BABY ASPIRIN [Concomitant]
     Indication: PRODUCT USED FOR UNKNOWN INDICATION
     Dates: end: 201307

REACTIONS (31)
  - Feeling abnormal [Unknown]
  - Atrial fibrillation [Unknown]
  - Decreased appetite [Unknown]
  - Dehydration [Unknown]
  - Myalgia [Unknown]
  - Feeling abnormal [Unknown]
  - Feeling abnormal [Unknown]
  - Dizziness [Not Recovered/Not Resolved]
  - Asthenia [Not Recovered/Not Resolved]
  - Nausea [Not Recovered/Not Resolved]
  - Gastrointestinal disorder [Unknown]
  - Urticaria [Unknown]
  - Flushing [Unknown]
  - Hypertension [Unknown]
  - Hypersensitivity [Unknown]
  - Vomiting [Unknown]
  - Diarrhoea [Unknown]
  - Arthralgia [Unknown]
  - Nausea [Unknown]
  - Drug ineffective [Unknown]
  - Sinus bradycardia [Unknown]
  - Drug intolerance [Unknown]
  - Pruritus [Unknown]
  - Swollen tongue [Unknown]
  - Back pain [Unknown]
  - Pain [Unknown]
  - Vision blurred [Unknown]
  - Gastrointestinal erosion [Unknown]
  - Nervousness [Unknown]
  - Drug ineffective [Unknown]
  - Drug ineffective [Unknown]
